FAERS Safety Report 11517944 (Version 1)
Quarter: 2015Q3

REPORT INFORMATION
  Report Type: Spontaneous
  Country: US (occurrence: US)
  Receive Date: 20150917
  Receipt Date: 20150917
  Transmission Date: 20151125
  Serious: No
  Sender: FDA-Public Use
  Company Number: US-RB-077974-15

PATIENT

DRUGS (1)
  1. MUCINEX FAST-MAX NIGHT TIME COLD AND FLU [Suspect]
     Active Substance: ACETAMINOPHEN\DIPHENHYDRAMINE HYDROCHLORIDE\PHENYLEPHRINE HYDROCHLORIDE
     Indication: PRODUCT USED FOR UNKNOWN INDICATION
     Dosage: . ,PRN
     Route: 065

REACTIONS (3)
  - Product use issue [Unknown]
  - No adverse event [Unknown]
  - Overdose [Unknown]
